FAERS Safety Report 14177231 (Version 4)
Quarter: 2018Q2

REPORT INFORMATION
  Report Type: Spontaneous
  Country: US (occurrence: US)
  Receive Date: 20171110
  Receipt Date: 20180622
  Transmission Date: 20180711
  Serious: No
  Sender: FDA-Public Use
  Company Number: US-PFIZER INC-2017337312

PATIENT
  Age: 12 Year
  Sex: Male
  Weight: 39 kg

DRUGS (4)
  1. GENOTROPIN [Suspect]
     Active Substance: SOMATROPIN
     Indication: GROWTH RETARDATION
     Dosage: 1 MG, DAILY (1MG INJECTION DAILY)/5MG/1.0
     Dates: start: 201611, end: 20171031
  2. PROBIOTIC [Concomitant]
     Active Substance: PROBIOTICS NOS
     Indication: GASTROINTESTINAL OEDEMA
     Dosage: UNK, 1X/DAY
  3. PROBIOTIC [Concomitant]
     Active Substance: PROBIOTICS NOS
     Indication: GASTROINTESTINAL INFLAMMATION
  4. GENOTROPIN [Suspect]
     Active Substance: SOMATROPIN
     Dosage: UNK

REACTIONS (4)
  - Injection site pain [Unknown]
  - Drug dose omission [Unknown]
  - Device issue [Unknown]
  - Wrong technique in product usage process [Unknown]

NARRATIVE: CASE EVENT DATE: 20171101
